FAERS Safety Report 4925633-5 (Version None)
Quarter: 2006Q1

REPORT INFORMATION
  Report Type: 
  Country: None (occurrence: None)
  Receive Date: 20060228
  Receipt Date: 20050111
  Transmission Date: 20060701
  Serious: No
  Sender: FDA-Public Use
  Company Number: 598650

PATIENT
  Age: 44 Year
  Sex: Female
  Weight: 78.2 kg

DRUGS (3)
  1. LAMICTAL [Suspect]
     Indication: BIPOLAR DISORDER
     Dosage: 200MG TWICE PER DAY
     Route: 048
     Dates: start: 20041019
  2. SEROQUEL [Concomitant]
     Dosage: 200MG PER DAY
  3. NEURONTIN [Concomitant]
     Route: 065

REACTIONS (1)
  - RASH GENERALISED [None]
